FAERS Safety Report 10917382 (Version 1)
Quarter: 2015Q1

REPORT INFORMATION
  Report Type: Spontaneous
  Country: US (occurrence: US)
  Receive Date: 20150316
  Receipt Date: 20150316
  Transmission Date: 20150721
  Serious: No
  Sender: FDA-Public Use
  Company Number: US-PFIZER INC-2015089405

PATIENT
  Age: 41 Year
  Sex: Female
  Weight: 76 kg

DRUGS (1)
  1. PREMARIN [Suspect]
     Active Substance: ESTROGENS, CONJUGATED
     Indication: POSTOPERATIVE CARE
     Dosage: UNK

REACTIONS (5)
  - Product quality issue [Unknown]
  - Vaginal haemorrhage [Unknown]
  - Vaginal erosion [Unknown]
  - Product use issue [Unknown]
  - Vulvovaginal pain [Unknown]
